FAERS Safety Report 6612300-5 (Version None)
Quarter: 2010Q1

REPORT INFORMATION
  Report Type: 
  Country: None (occurrence: None)
  Receive Date: 20100302
  Receipt Date: 20100302
  Transmission Date: 20100710
  Serious: No
  Sender: FDA-Public Use
  Company Number: None

PATIENT
  Age: 65 Year
  Sex: Female
  Weight: 65.318 kg

DRUGS (1)
  1. LEVAQUIN [Suspect]
     Indication: SINUSITIS
     Dosage: 1 PILL DAILY PO
     Route: 048
     Dates: start: 20100118, end: 20100119

REACTIONS (3)
  - ABDOMINAL PAIN UPPER [None]
  - CONTUSION [None]
  - PAIN IN EXTREMITY [None]
